FAERS Safety Report 7409902-5 (Version None)
Quarter: 2011Q2

REPORT INFORMATION
  Report Type: 
  Country: None (occurrence: None)
  Receive Date: 20110412
  Receipt Date: 20110406
  Transmission Date: 20111010
  Serious: Yes (Other)
  Sender: FDA-Public Use
  Company Number: GB-ELI_LILLY_AND_COMPANY-GB201104001479

PATIENT
  Age: 56 Year
  Sex: Female
  Weight: 106 kg

DRUGS (1)
  1. BYETTA [Suspect]
     Dosage: 10 UG, UNK
     Route: 058

REACTIONS (3)
  - CONTUSION [None]
  - ACCIDENTAL OVERDOSE [None]
  - VOMITING [None]
